FAERS Safety Report 14396838 (Version 1)
Quarter: 2018Q1

REPORT INFORMATION
  Report Type: Report from Study
  Country: None (occurrence: IL)
  Receive Date: 20180116
  Receipt Date: 20180116
  Transmission Date: 20180509
  Serious: Yes (Death)
  Sender: FDA-Public Use
  Company Number: IL-ABBVIE-17P-082-2118849-00

PATIENT
  Sex: Male

DRUGS (2)
  1. VENETOCLAX. [Suspect]
     Active Substance: VENETOCLAX
     Route: 048
     Dates: start: 2017
  2. VENETOCLAX. [Suspect]
     Active Substance: VENETOCLAX
     Indication: ACUTE MYELOID LEUKAEMIA
     Route: 048
     Dates: start: 20170424, end: 2017

REACTIONS (2)
  - Death [Fatal]
  - Leukocytosis [Not Recovered/Not Resolved]

NARRATIVE: CASE EVENT DATE: 201712
